FAERS Safety Report 8740278 (Version 2)
Quarter: 2012Q4

REPORT INFORMATION
  Report Type: 
  Country: US (occurrence: US)
  Receive Date: 20120823
  Receipt Date: 20120921
  Transmission Date: 20130627
  Serious: No
  Sender: FDA-Public Use
  Company Number: US-009507513-1208USA002473

PATIENT
  Sex: Female

DRUGS (1)
  1. AZASITE [Suspect]

REACTIONS (1)
  - Urticaria [Unknown]
